FAERS Safety Report 5285031-4 (Version None)
Quarter: 2007Q1

REPORT INFORMATION
  Report Type: 
  Country: None (occurrence: None)
  Receive Date: 20061229
  Receipt Date: 20060908
  Transmission Date: 20070707
  Serious: Yes (Other)
  Sender: FDA-Public Use
  Company Number: 2006UW17694

PATIENT
  Age: 64 Year
  Sex: Female
  Weight: 68.3 kg

DRUGS (8)
  1. CRESTOR [Suspect]
     Indication: BLOOD CHOLESTEROL INCREASED
  2. VITAMINS [Concomitant]
  3. CALCIUM [Concomitant]
  4. NEURONTIN [Concomitant]
  5. PROZAC [Concomitant]
  6. RISPERDAL [Concomitant]
  7. WELLBUTRIN [Concomitant]
  8. EYE DROPS [Concomitant]

REACTIONS (2)
  - FALL [None]
  - MUSCULAR WEAKNESS [None]
